FAERS Safety Report 15796844 (Version 2)
Quarter: 2019Q1

REPORT INFORMATION
  Report Type: Spontaneous
  Country: US (occurrence: US)
  Receive Date: 20190108
  Receipt Date: 20190314
  Transmission Date: 20190417
  Serious: Yes (Hospitalization, Other)
  Sender: FDA-Public Use
  Company Number: US-BIOGEN-2012BI025231

PATIENT
  Sex: Male
  Weight: 85.08 kg

DRUGS (2)
  1. AVONEX [Suspect]
     Active Substance: INTERFERON BETA-1A
     Route: 050
     Dates: start: 20100506, end: 20100901
  2. AVONEX [Suspect]
     Active Substance: INTERFERON BETA-1A
     Indication: MULTIPLE SCLEROSIS
     Route: 050
     Dates: start: 20100405

REACTIONS (17)
  - Headache [Recovered/Resolved]
  - Angina pectoris [Recovered/Resolved]
  - Road traffic accident [Recovered/Resolved]
  - Ataxia [Recovered/Resolved]
  - Discomfort [Unknown]
  - Dehydration [Recovered/Resolved]
  - Depression [Recovered/Resolved]
  - Hypersensitivity [Recovered/Resolved]
  - Hypertension [Recovered/Resolved]
  - Pain in extremity [Recovered/Resolved]
  - Diabetes mellitus [Recovered/Resolved]
  - Multiple sclerosis [Unknown]
  - Seizure [Recovered/Resolved]
  - Mood swings [Unknown]
  - Feeling hot [Recovered/Resolved]
  - Suicidal ideation [Recovered/Resolved]
  - Stress [Recovered/Resolved]

NARRATIVE: CASE EVENT DATE: 2010
